FAERS Safety Report 8114983-X (Version None)
Quarter: 2012Q1

REPORT INFORMATION
  Report Type: 
  Country: None (occurrence: None)
  Receive Date: 20120206
  Receipt Date: 20120127
  Transmission Date: 20120608
  Serious: Yes (Other)
  Sender: FDA-Public Use
  Company Number: US-BRISTOL-MYERS SQUIBB COMPANY-16372393

PATIENT
  Age: 72 Year
  Sex: Female
  Weight: 68 kg

DRUGS (1)
  1. ERBITUX [Suspect]
     Dates: start: 20120101

REACTIONS (1)
  - HAEMATEMESIS [None]
